FAERS Safety Report 25374710 (Version 1)
Quarter: 2025Q2

REPORT INFORMATION
  Report Type: Spontaneous
  Country: US (occurrence: None)
  Receive Date: 20250529
  Receipt Date: 20250529
  Transmission Date: 20250717
  Serious: Yes (Hospitalization)
  Sender: FDA-CTU
  Company Number: None

PATIENT
  Sex: Female

DRUGS (9)
  1. ICATIBANT ACETATE [Suspect]
     Active Substance: ICATIBANT ACETATE
     Indication: Immune system disorder
     Route: 058
     Dates: start: 20231102
  2. FIRAZYR SYR [Concomitant]
  3. SOD CHLOR POS STERILE F (10ML) [Concomitant]
  4. HEPARIN L/L FLUSH SYRINGE [Concomitant]
  5. RASUVO [Concomitant]
     Active Substance: METHOTREXATE SODIUM
  6. NORMAL SALINE FLUSH (5ML) [Concomitant]
  7. DUPIXENT [Concomitant]
     Active Substance: DUPILUMAB
  8. ICATIBANT ACETATE [Concomitant]
     Active Substance: ICATIBANT ACETATE
  9. BERINERT [Suspect]
     Active Substance: HUMAN C1-ESTERASE INHIBITOR

REACTIONS (3)
  - Swelling face [None]
  - Abdominal distension [None]
  - Peripheral swelling [None]
